FAERS Safety Report 19358524 (Version 1)
Quarter: 2021Q2

REPORT INFORMATION
  Report Type: Spontaneous
  Country: NL (occurrence: NL)
  Receive Date: 20210601
  Receipt Date: 20210601
  Transmission Date: 20210717
  Serious: Yes (Life-Threatening)
  Sender: FDA-Public Use
  Company Number: NL-BAXTER-2021BAX012802

PATIENT
  Age: 1 Day
  Sex: Female
  Weight: 2.5 kg

DRUGS (1)
  1. GLUCOSE 5% , OPLOSSING VOOR INTRAVENEUZE INFUSIE 50 G/L [Suspect]
     Active Substance: DEXTROSE
     Indication: HYPOGLYCAEMIA NEONATAL
     Dosage: 400 MG/ML (40%) DOSE: 0.6 G
     Route: 065
     Dates: start: 20210512, end: 20210512

REACTIONS (2)
  - Choking [Recovered/Resolved]
  - Dyspnoea [Recovered/Resolved]
